FAERS Safety Report 9502930 (Version 1)
Quarter: 2013Q3

REPORT INFORMATION
  Report Type: Report from Study
  Country: BR (occurrence: BR)
  Receive Date: 20130906
  Receipt Date: 20130906
  Transmission Date: 20140515
  Serious: Yes (Hospitalization, Other)
  Sender: FDA-Public Use
  Company Number: PHHY2013BR097571

PATIENT
  Age: 72 Year
  Sex: Female
  Weight: 66 kg

DRUGS (5)
  1. ACLASTA [Suspect]
     Indication: OSTEOPOROSIS
     Dosage: 1 INJECTION (5 MG), UNK
     Route: 042
     Dates: start: 2009
  2. ACLASTA [Suspect]
     Dosage: 1 INJECTION (5 MG), UNK
     Route: 042
  3. ACLASTA [Suspect]
     Dosage: 1 INJECTION (5 MG), UNK
     Route: 042
  4. ACLASTA [Suspect]
     Dosage: 1 INJECTION (5 MG), UNK
     Route: 042
  5. SIFROL [Concomitant]
     Indication: PARKINSON^S DISEASE
     Dosage: 1 TABLET (25 MG), DAILY
     Route: 048

REACTIONS (3)
  - Fall [Recovered/Resolved]
  - Femur fracture [Recovered/Resolved]
  - Ankle fracture [Recovering/Resolving]
